FAERS Safety Report 8225326-5 (Version None)
Quarter: 2012Q1

REPORT INFORMATION
  Report Type: 
  Country: None (occurrence: None)
  Receive Date: 20120321
  Receipt Date: 20120318
  Transmission Date: 20120608
  Serious: Yes (Hospitalization)
  Sender: FDA-Public Use
  Company Number: US-GLAXOSMITHKLINE-A0970537A

PATIENT
  Age: 54 Year
  Sex: Female

DRUGS (3)
  1. COUMADIN [Concomitant]
     Dosage: 1MG UNKNOWN
  2. LASIX [Concomitant]
     Dosage: 40MGD PER DAY
  3. FLOLAN [Suspect]
     Indication: PULMONARY ARTERIAL HYPERTENSION
     Dosage: 47NGKM UNKNOWN
     Route: 042
     Dates: start: 20000302

REACTIONS (1)
  - PNEUMONIA [None]
